FAERS Safety Report 14356220 (Version 1)
Quarter: 2018Q1

REPORT INFORMATION
  Report Type: Spontaneous
  Country: US (occurrence: US)
  Receive Date: 20180105
  Receipt Date: 20180105
  Transmission Date: 20180509
  Serious: No
  Sender: FDA-Public Use
  Company Number: US-ALLERGAN-1759912US

PATIENT
  Age: 51 Year
  Sex: Male

DRUGS (4)
  1. KYBELLA [Suspect]
     Active Substance: DEOXYCHOLIC ACID
     Dosage: 3 VIALS,SINGLE
     Route: 058
     Dates: start: 20170810, end: 20170810
  2. KYBELLA [Suspect]
     Active Substance: DEOXYCHOLIC ACID
     Indication: FAT TISSUE INCREASED
     Dosage: 3 VIALS,SINGLE
     Route: 058
     Dates: start: 20170810, end: 20170810
  3. KYBELLA [Suspect]
     Active Substance: DEOXYCHOLIC ACID
     Dosage: 2 VIALS, SINGLE
     Route: 058
     Dates: start: 20170831, end: 20170831
  4. KYBELLA [Suspect]
     Active Substance: DEOXYCHOLIC ACID
     Dosage: 3 VIALS , SINGLE
     Route: 058
     Dates: start: 20170915, end: 20170915

REACTIONS (2)
  - Drug ineffective [Unknown]
  - Application site alopecia [Not Recovered/Not Resolved]

NARRATIVE: CASE EVENT DATE: 2017
